FAERS Safety Report 5452162-5 (Version None)
Quarter: 2007Q3

REPORT INFORMATION
  Report Type: 
  Country: None (occurrence: None)
  Receive Date: 20070914
  Receipt Date: 20070910
  Transmission Date: 20080115
  Serious: Yes (Life-Threatening, Hospitalization, Other)
  Sender: FDA-Public Use
  Company Number: PHMT2007CA01106

PATIENT
  Age: 60 Year
  Sex: Male
  Weight: 63.492 kg

DRUGS (10)
  1. ZELNORM [Suspect]
     Indication: IRRITABLE BOWEL SYNDROME
     Dosage: 6 MG, BID
     Route: 048
     Dates: start: 20060101, end: 20070401
  2. ASPIRIN [Concomitant]
     Dosage: 81 MG, UNK
  3. CAPTOPRIL [Concomitant]
     Dosage: 12.5 MG, TID
  4. DIGOXIN [Concomitant]
  5. PANTOPRAZOLE SODIUM [Concomitant]
     Dosage: 40 MG, QD
  6. DICETEL [Concomitant]
     Dosage: 100 MG, TID
  7. BUSCOPAN [Concomitant]
     Dosage: 10 MG, PRN
  8. INSULIN [Concomitant]
  9. SERAX [Concomitant]
     Dosage: 30 MG, QD, BEDTIME
  10. ELTROXIN [Concomitant]
     Dosage: 50 UG, UNK

REACTIONS (7)
  - ANGIOPATHY [None]
  - EJECTION FRACTION DECREASED [None]
  - EMBOLISM [None]
  - ILIAC ARTERY OCCLUSION [None]
  - MYOCARDIAL INFARCTION [None]
  - SUPRAVENTRICULAR TACHYCARDIA [None]
  - TROPONIN INCREASED [None]
